FAERS Safety Report 8905815 (Version 4)
Quarter: 2014Q1

REPORT INFORMATION
  Report Type: Report from Study
  Country: JP (occurrence: JP)
  Receive Date: 20121113
  Receipt Date: 20140205
  Transmission Date: 20141002
  Serious: Yes (Death, Life-Threatening)
  Sender: FDA-Public Use
  Company Number: JP-GLAXOSMITHKLINE-B0843708A

PATIENT
  Age: 85 Year
  Sex: Female
  Weight: 50 kg

DRUGS (5)
  1. REVOLADE [Suspect]
     Indication: IMMUNE THROMBOCYTOPENIC PURPURA
     Dosage: 12.5MG PER DAY
     Route: 048
     Dates: start: 20120620, end: 20120629
  2. REVOLADE [Suspect]
     Indication: IMMUNE THROMBOCYTOPENIC PURPURA
     Dosage: 25MG PER DAY
     Route: 048
     Dates: start: 20120630, end: 20120712
  3. ROMIPLATE [Concomitant]
     Route: 058
     Dates: start: 20120718
  4. PREDONINE [Concomitant]
     Indication: IMMUNE THROMBOCYTOPENIC PURPURA
     Route: 048
     Dates: end: 20120725
  5. TAKEPRON [Concomitant]
     Route: 048

REACTIONS (6)
  - Renal impairment [Recovered/Resolved]
  - Haemoglobin decreased [Fatal]
  - Blood albumin decreased [Fatal]
  - Aspartate aminotransferase abnormal [Recovered/Resolved]
  - Alanine aminotransferase abnormal [Recovered/Resolved]
  - Blood lactate dehydrogenase abnormal [Recovered/Resolved]
